FAERS Safety Report 10009966 (Version 2)
Quarter: 2014Q1

REPORT INFORMATION
  Report Type: Spontaneous
  Country: US (occurrence: US)
  Receive Date: 20140312
  Receipt Date: 20140312
  Transmission Date: 20141002
  Serious: Yes (Other)
  Sender: FDA-Public Use
  Company Number: US-INCYTE CORPORATION-2012IN002531

PATIENT
  Age: 69 Year
  Sex: Male
  Weight: 97.96 kg

DRUGS (16)
  1. JAKAFI [Suspect]
     Indication: MYELOFIBROSIS
     Dosage: 5 MG, BID
     Route: 048
     Dates: start: 201112
  2. JAKAFI [Suspect]
     Indication: MYELODYSPLASTIC SYNDROME
     Dosage: 15 MG, UNK
     Route: 048
     Dates: end: 20130102
  3. JAKAFI [Suspect]
     Dosage: 20 MG, QD
     Route: 048
     Dates: start: 20130103, end: 2013
  4. JAKAFI [Suspect]
     Dosage: 20 MG, BID
     Route: 048
     Dates: start: 2013, end: 20130116
  5. JAKAFI [Suspect]
     Dosage: 15 MG, QD
     Route: 048
     Dates: start: 20130117, end: 20130213
  6. JAKAFI [Suspect]
     Dosage: 5 MG, BID (10 MG, QD)
     Route: 048
     Dates: start: 20130214
  7. EXJADE [Concomitant]
  8. TRACLEER [Concomitant]
  9. ASA [Concomitant]
  10. FOLIC ACID [Concomitant]
  11. ALLOPURINOL [Concomitant]
  12. COLCHICINE [Concomitant]
  13. PRILOSEC [Concomitant]
  14. VENTOLIN HFA [Concomitant]
  15. BUMETANIDE [Concomitant]
  16. KLOR-CON [Concomitant]

REACTIONS (7)
  - Platelet count decreased [Recovering/Resolving]
  - Anaemia [Recovering/Resolving]
  - Insomnia [Unknown]
  - Dyspnoea [None]
  - Cyanosis [Unknown]
  - Fatigue [Unknown]
  - Haemorrhage [Recovering/Resolving]
